FAERS Safety Report 5746080-2 (Version None)
Quarter: 2008Q2

REPORT INFORMATION
  Report Type: 
  Country: None (occurrence: None)
  Receive Date: 20080522
  Receipt Date: 20070508
  Transmission Date: 20081010
  Serious: No
  Sender: FDA-Public Use
  Company Number: A0650429A

PATIENT
  Age: 55 Year
  Sex: Male

DRUGS (2)
  1. BACTROBAN [Suspect]
     Route: 045
     Dates: start: 20070502
  2. NO CONCURRENT MEDICATION [Concomitant]

REACTIONS (2)
  - AGEUSIA [None]
  - ANOSMIA [None]
